FAERS Safety Report 16581477 (Version 1)
Quarter: 2019Q3

REPORT INFORMATION
  Report Type: Spontaneous
  Country: FR (occurrence: FR)
  Receive Date: 20190716
  Receipt Date: 20190716
  Transmission Date: 20191004
  Serious: Yes (Death)
  Sender: FDA-Public Use
  Company Number: FR-009507513-1907FRA004949

PATIENT
  Age: 32 Year
  Sex: Female
  Weight: 103 kg

DRUGS (6)
  1. PROVAMES [Suspect]
     Active Substance: ESTRADIOL
     Indication: ASSISTED FERTILISATION
     Dosage: 6 MILLIGRAM, QD
     Route: 048
     Dates: start: 20180828, end: 20181029
  2. PUREGON (FOLLITROPIN BETA) [Suspect]
     Active Substance: FOLLITROPIN
     Indication: ASSISTED FERTILISATION
     Dosage: 50 INTERNATIONAL UNIT, QD
     Route: 058
     Dates: start: 20160712, end: 201610
  3. DUPHASTON [Suspect]
     Active Substance: DYDROGESTERONE
     Indication: ASSISTED FERTILISATION
     Dosage: 20 MILLIGRAM, QD
     Route: 048
     Dates: start: 20161003, end: 201810
  4. MENOPUR [Suspect]
     Active Substance: FOLLITROPIN\LUTEINIZING HORMONE
     Indication: ASSISTED FERTILISATION
     Dosage: 75 INTERNATIONAL UNIT, QD; POWDER AND SOLVENT FOR SOLUTION FOR INJECTION
     Route: 058
     Dates: start: 20161124, end: 201802
  5. DECAPEPTYL (ACETATE) [Suspect]
     Active Substance: TRIPTORELIN ACETATE
     Indication: ASSISTED FERTILISATION
     Dosage: 0.1 MILLIGRAM, QD; POWDER AND SOLVENT FOR SOLUTION FOR INJECTION (SUBCUTANEOUS)
     Route: 058
     Dates: start: 20180423
  6. PROGESTAN [Concomitant]
     Active Substance: PROGESTERONE
     Indication: ASSISTED FERTILISATION
     Dosage: NOT SPECIFIED
     Route: 048
     Dates: start: 20181029, end: 20181104

REACTIONS (2)
  - Hypertriglyceridaemia [Fatal]
  - Pancreatitis acute [Fatal]

NARRATIVE: CASE EVENT DATE: 20181104
